FAERS Safety Report 11291629 (Version 1)
Quarter: 2015Q3

REPORT INFORMATION
  Report Type: Spontaneous
  Country: US (occurrence: None)
  Receive Date: 20150721
  Receipt Date: 20150721
  Transmission Date: 20151125
  Serious: No
  Sender: FDA-Public Use
  Company Number: None

PATIENT
  Age: 57 Year
  Sex: Female

DRUGS (6)
  1. CALCIUM [Concomitant]
     Active Substance: CALCIUM
  2. NORTRIPTYLIN [Concomitant]
     Active Substance: NORTRIPTYLINE
  3. SELENIUM [Concomitant]
     Active Substance: SELENIUM
  4. FROVA [Concomitant]
     Active Substance: FROVATRIPTAN SUCCINATE
  5. IBRANCE [Suspect]
     Active Substance: PALBOCICLIB
     Indication: BREAST CANCER
     Dosage: 1-21 OF 28 DAYS
     Route: 048
     Dates: start: 20150526
  6. LETROZOLE. [Concomitant]
     Active Substance: LETROZOLE

REACTIONS (2)
  - Dyspepsia [None]
  - Urinary tract infection [None]

NARRATIVE: CASE EVENT DATE: 20150711
